FAERS Safety Report 23341457 (Version 2)
Quarter: 2024Q4

REPORT INFORMATION
  Report Type: Other
  Country: CA (occurrence: CA)
  Receive Date: 20231227
  Receipt Date: 20241215
  Transmission Date: 20250114
  Serious: Yes (Other)
  Sender: APOTEX
  Company Number: CA-APOTEX-2023AP018281

PATIENT
  Age: 53 Year
  Sex: Female
  Weight: 78 kg

DRUGS (7)
  1. CARBAMAZEPINE [Interacting]
     Active Substance: CARBAMAZEPINE
     Indication: Epilepsy
     Dosage: 200 MILLIGRAM, BID
     Route: 048
  2. WARFARIN SODIUM [Interacting]
     Active Substance: WARFARIN SODIUM
     Indication: Thrombosis prophylaxis
     Dosage: 13.5 MILLIGRAM, QD
     Route: 048
  3. SAXENDA [Interacting]
     Active Substance: LIRAGLUTIDE
     Indication: Weight control
     Dosage: 0.6 MILLIGRAM, QD
     Route: 058
  4. SAXENDA [Interacting]
     Active Substance: LIRAGLUTIDE
     Dosage: 0.5 MILLIGRAM, QD
     Route: 058
  5. LAMOTRIGINE [Concomitant]
     Active Substance: LAMOTRIGINE
     Indication: Product used for unknown indication
     Dosage: UNK
     Route: 065
  6. PANTOPRAZOLE [Concomitant]
     Active Substance: PANTOPRAZOLE
     Indication: Product used for unknown indication
     Dosage: UNK
     Route: 065
  7. ROSUVASTATIN [Concomitant]
     Active Substance: ROSUVASTATIN
     Indication: Product used for unknown indication
     Dosage: UNK
     Route: 065

REACTIONS (2)
  - Anticoagulation drug level above therapeutic [Recovered/Resolved]
  - Drug interaction [Recovered/Resolved]
